FAERS Safety Report 6342402-2 (Version None)
Quarter: 2009Q3

REPORT INFORMATION
  Report Type: 
  Country: None (occurrence: None)
  Receive Date: 20090908
  Receipt Date: 20010412
  Transmission Date: 20100115
  Serious: No
  Sender: FDA-Public Use
  Company Number: JP-ROCHE-258553

PATIENT
  Age: 28 Year
  Sex: Female

DRUGS (5)
  1. TAMIFLU [Suspect]
     Route: 048
     Dates: start: 20010402, end: 20010406
  2. SOLITA [Concomitant]
     Route: 041
     Dates: start: 20010402, end: 20010402
  3. UNKNOWN MEDICATION [Concomitant]
     Route: 041
     Dates: start: 20010402, end: 20010402
  4. UNKNOWN MEDICATION [Concomitant]
     Route: 048
     Dates: start: 20010407, end: 20010410
  5. AMBROXOL [Concomitant]
     Route: 048
     Dates: start: 20010407, end: 20010410

REACTIONS (2)
  - DRUG EXPOSURE DURING PREGNANCY [None]
  - PREGNANCY [None]
